FAERS Safety Report 19904234 (Version 3)
Quarter: 2022Q3

REPORT INFORMATION
  Report Type: Spontaneous
  Country: DE (occurrence: DE)
  Receive Date: 20210930
  Receipt Date: 20220810
  Transmission Date: 20221027
  Serious: Yes (Death)
  Sender: FDA-Public Use
  Company Number: DE-SA-SAC20210622000034

PATIENT
  Age: 80 Year
  Sex: Male
  Weight: 69 kg

DRUGS (108)
  1. POLYETHYLENE GLYCOL 4000 [Suspect]
     Active Substance: POLYETHYLENE GLYCOL 4000
     Indication: Constipation
     Dosage: 17 MILLIGRAM
     Route: 048
  2. ACETAMINOPHEN [Suspect]
     Active Substance: ACETAMINOPHEN
     Indication: Analgesic therapy
     Dosage: 650 MILLIGRAM, QD
     Route: 048
  3. POLYETHYLENE GLYCOLS [Suspect]
     Active Substance: POLYETHYLENE GLYCOLS
     Indication: Product used for unknown indication
     Dosage: 17 GRAM, QD
     Route: 048
  4. .ALPHA.-TOCOPHEROL, DL- [Suspect]
     Active Substance: .ALPHA.-TOCOPHEROL, DL-
     Indication: Nutritional supplementation
     Dosage: 12.5 GRAM
     Route: 042
  5. PHYTONADIONE [Suspect]
     Active Substance: PHYTONADIONE
     Indication: Off label use
     Dosage: 5 MILLIGRAM, QD
     Route: 042
  6. OSELTAMIVIR [Suspect]
     Active Substance: OSELTAMIVIR
     Indication: Product used for unknown indication
     Dosage: 133 MILLILITER
     Route: 054
  7. DEXTROSE AND SODIUM CHLORIDE [Suspect]
     Active Substance: DEXTROSE MONOHYDRATE\SODIUM CHLORIDE
     Indication: Nutritional supplementation
     Dosage: 12.5 MG, PRN
     Route: 042
  8. DEXTROSE AND SODIUM CHLORIDE [Suspect]
     Active Substance: DEXTROSE MONOHYDRATE\SODIUM CHLORIDE
     Dosage: 12.5 MG, PRN
     Route: 042
  9. ONDANSETRON [Suspect]
     Active Substance: ONDANSETRON
     Indication: Vomiting
     Dosage: 4 MG, Q8H
     Route: 042
  10. ONDANSETRON [Suspect]
     Active Substance: ONDANSETRON
     Indication: Nausea
     Dosage: UNK
     Route: 065
  11. ONDANSETRON [Suspect]
     Active Substance: ONDANSETRON
     Dosage: 12 MG, Q8H
     Route: 042
  12. ALLOPURINOL [Suspect]
     Active Substance: ALLOPURINOL
     Indication: Blood uric acid increased
     Dosage: 100 MG
     Route: 048
  13. ALLOPURINOL [Suspect]
     Active Substance: ALLOPURINOL
     Dosage: 1 DF, QD
     Route: 048
  14. NOREPINEPHRINE BITARTRATE [Suspect]
     Active Substance: NOREPINEPHRINE BITARTRATE
     Indication: Product used for unknown indication
     Dosage: 3 MILLIGRAM, QD
     Route: 048
  15. METRONIDAZOLE [Suspect]
     Active Substance: METRONIDAZOLE
     Indication: Bacterial infection
     Dosage: 500 MG, TID
     Route: 048
  16. FLUTICASONE FUROATE\VILANTEROL TRIFENATATE [Suspect]
     Active Substance: FLUTICASONE FUROATE\VILANTEROL TRIFENATATE
     Indication: Product used for unknown indication
     Dosage: UNK
     Route: 065
  17. VASOPRESSIN [Suspect]
     Active Substance: VASOPRESSIN
     Indication: Drug therapy
     Dosage: UNK
     Route: 042
  18. VASOPRESSIN [Suspect]
     Active Substance: VASOPRESSIN
     Dosage: UNK
     Route: 042
  19. CALCITRIOL [Suspect]
     Active Substance: CALCITRIOL
     Indication: Vitamin D
     Dosage: 0.25 UG, QD
     Route: 048
  20. UMECLIDINIUM BROMIDE\VILANTEROL TRIFENATATE [Suspect]
     Active Substance: UMECLIDINIUM BROMIDE\VILANTEROL TRIFENATATE
     Indication: Dyspnoea
     Dosage: 1 IU, QD
     Route: 048
  21. DISTIGMINE BROMIDE [Suspect]
     Active Substance: DISTIGMINE BROMIDE
     Indication: Dyspnoea
     Dosage: 1 IU, QD
     Route: 048
  22. LANSOPRAZOLE [Suspect]
     Active Substance: LANSOPRAZOLE
     Indication: Antacid therapy
     Dosage: 30 MG, QD
     Route: 065
  23. LANSOPRAZOLE [Suspect]
     Active Substance: LANSOPRAZOLE
     Dosage: 30 MG, QD
     Route: 048
  24. HEPARIN SODIUM IN DEXTROSE [Suspect]
     Active Substance: HEPARIN SODIUM
     Indication: Anticoagulant therapy
     Dosage: 250 ML, QD (ONCE A DAY)
     Route: 042
  25. HEPARIN SODIUM IN DEXTROSE [Suspect]
     Active Substance: HEPARIN SODIUM
     Dosage: 50 ML, 1X/DAY (ONCE A DAY)
     Route: 042
  26. LANTHANUM CARBONATE [Suspect]
     Active Substance: LANTHANUM CARBONATE
     Indication: Blood phosphorus increased
     Dosage: 500 MG, QD
     Route: 048
  27. DOBUTAMINE HYDROCHLORIDE [Suspect]
     Active Substance: DOBUTAMINE HYDROCHLORIDE
     Indication: Cardiogenic shock
     Dosage: UNK
     Route: 042
  28. AMIODARONE HYDROCHLORIDE [Suspect]
     Active Substance: AMIODARONE HYDROCHLORIDE
     Indication: Drug therapy
     Dosage: 150 MG, QD
     Route: 042
  29. AMIODARONE HYDROCHLORIDE [Suspect]
     Active Substance: AMIODARONE HYDROCHLORIDE
     Indication: Ventricular fibrillation
     Dosage: UNK
     Route: 042
  30. DEXTROSE [Suspect]
     Active Substance: DEXTROSE
     Indication: Nutritional supplementation
     Dosage: 12.5 MG, QD
     Route: 042
  31. PHYTONADIONE [Suspect]
     Active Substance: PHYTONADIONE
     Indication: Vitamin supplementation
     Dosage: 5 MG, QD
     Route: 042
  32. ATROVENT [Suspect]
     Active Substance: IPRATROPIUM BROMIDE
     Indication: Dyspnoea
     Route: 055
  33. ATROVENT [Suspect]
     Active Substance: IPRATROPIUM BROMIDE
     Indication: Sleep disorder therapy
  34. SODIUM PHOSPHATE, MONOBASIC [Suspect]
     Active Substance: SODIUM PHOSPHATE, MONOBASIC
     Indication: Constipation
     Dosage: 133 ML, PRN
     Route: 054
  35. METAMIZOLE SODIUM [Suspect]
     Active Substance: METAMIZOLE SODIUM
     Indication: Vitamin supplementation
     Dosage: 5 MG, QD
     Route: 042
  36. FLUTICASONE FUROATE [Suspect]
     Active Substance: FLUTICASONE FUROATE
     Indication: Product used for unknown indication
     Dosage: UNK
     Route: 045
  37. SODIUM FERRIC GLUCONATE COMPLEX [Suspect]
     Active Substance: SODIUM FERRIC GLUCONATE COMPLEX
     Indication: Iron deficiency
     Dosage: 4.64 MG, Q4W
     Route: 042
  38. SODIUM FERRIC GLUCONATE COMPLEX [Suspect]
     Active Substance: SODIUM FERRIC GLUCONATE COMPLEX
     Dosage: 4.64 MG, Q4W
     Route: 042
  39. SODIUM FERRIC GLUCONATE COMPLEX [Suspect]
     Active Substance: SODIUM FERRIC GLUCONATE COMPLEX
     Dosage: 125 MG, QW
     Route: 042
  40. HYDROMORPHONE HYDROCHLORIDE [Suspect]
     Active Substance: HYDROMORPHONE HYDROCHLORIDE
     Indication: Analgesic therapy
     Dosage: 6 MG, Q6H
     Route: 058
  41. HYDROMORPHONE HYDROCHLORIDE [Suspect]
     Active Substance: HYDROMORPHONE HYDROCHLORIDE
     Dosage: 1 MG, Q4H
     Route: 058
  42. POLYETHYLENE GLYCOL 3350 [Suspect]
     Active Substance: POLYETHYLENE GLYCOL 3350
     Indication: Product used for unknown indication
     Dosage: 17 GRAM, QD
     Route: 048
  43. GABAPENTIN [Suspect]
     Active Substance: GABAPENTIN
     Indication: Neuralgia
     Dosage: 100 MG, QD
     Route: 048
  44. GABAPENTIN [Suspect]
     Active Substance: GABAPENTIN
     Dosage: UNK
     Route: 065
  45. SODIUM PICOSULFATE [Suspect]
     Active Substance: SODIUM PICOSULFATE
     Indication: Constipation
     Dosage: 10 MG, PRN
     Route: 054
  46. CEFTRIAXONE SODIUM [Suspect]
     Active Substance: CEFTRIAXONE SODIUM
     Indication: Bacterial infection
     Dosage: 2 G, QD
     Route: 042
  47. INSULIN ASPART [Suspect]
     Active Substance: INSULIN ASPART
     Indication: Diabetes mellitus
     Route: 058
  48. DALTEPARIN SODIUM [Suspect]
     Active Substance: DALTEPARIN SODIUM
     Indication: Pulmonary embolism
     Dosage: UNK
     Route: 065
  49. UNSPECIFIED INGREDIENT [Suspect]
     Active Substance: UNSPECIFIED INGREDIENT
     Indication: Anticoagulant therapy
     Dosage: 250 ML, QD
     Route: 017
  50. UNSPECIFIED INGREDIENT [Suspect]
     Active Substance: UNSPECIFIED INGREDIENT
     Dosage: 50 UNK
     Route: 017
  51. ASIAN GINSENG [Suspect]
     Active Substance: ASIAN GINSENG
     Indication: Nutritional supplementation
     Dosage: 12.5 MG
     Route: 065
  52. HEPARIN SODIUM [Suspect]
     Active Substance: HEPARIN SODIUM
     Indication: Anticoagulant therapy
     Dosage: 50 UNK
     Route: 065
  53. HEPARIN SODIUM [Suspect]
     Active Substance: HEPARIN SODIUM
     Dosage: 250 ML, QD
     Route: 042
  54. BISMUTH SUBNITRATE [Suspect]
     Active Substance: BISMUTH SUBNITRATE
     Indication: Constipation
     Route: 065
  55. NOREPINEPHRINE BITARTRATE [Suspect]
     Active Substance: NOREPINEPHRINE BITARTRATE
     Indication: Stress
     Route: 042
  56. NOREPINEPHRINE BITARTRATE [Suspect]
     Active Substance: NOREPINEPHRINE BITARTRATE
     Dosage: UNK
     Route: 042
  57. DOBUTAMINE [Suspect]
     Active Substance: DOBUTAMINE HYDROCHLORIDE
     Indication: Cardiogenic shock
     Dosage: UNK
     Route: 042
  58. SIMVASTATIN [Suspect]
     Active Substance: SIMVASTATIN
     Indication: Blood cholesterol increased
     Dosage: 40 MG, QD
     Route: 048
  59. MELATONIN [Suspect]
     Active Substance: MELATONIN
     Indication: Sleep disorder therapy
     Dosage: 3 MG, QD
     Route: 048
  60. MELATONIN [Suspect]
     Active Substance: MELATONIN
     Dosage: UNK
     Route: 065
  61. BISACODYL [Suspect]
     Active Substance: BISACODYL
     Indication: Constipation
     Dosage: 10 MG, PRN
     Route: 054
  62. BISACODYL [Suspect]
     Active Substance: BISACODYL
     Route: 054
  63. BISACODYL [Suspect]
     Active Substance: BISACODYL
     Route: 054
  64. BETAMETHASONE [Suspect]
     Active Substance: BETAMETHASONE
     Indication: Swelling
     Dosage: 1 DF, PRN
     Route: 061
  65. BETAMETHASONE [Suspect]
     Active Substance: BETAMETHASONE
     Route: 061
  66. DEXTROSE\HEPARIN [Suspect]
     Active Substance: DEXTROSE\HEPARIN
     Indication: Anticoagulant therapy
     Dosage: 50 ML
     Route: 042
  67. DEXTROSE\HEPARIN [Suspect]
     Active Substance: DEXTROSE\HEPARIN
     Dosage: 250 UNK
     Route: 042
  68. DEXTROSE\HEPARIN [Suspect]
     Active Substance: DEXTROSE\HEPARIN
     Route: 042
  69. ARANESP [Suspect]
     Active Substance: DARBEPOETIN ALFA
     Indication: Anaemia
     Dosage: 1.42 UG, QW
     Route: 042
  70. ARANESP [Suspect]
     Active Substance: DARBEPOETIN ALFA
     Dosage: 0.75 UG, QOW
     Route: 042
  71. ARANESP [Suspect]
     Active Substance: DARBEPOETIN ALFA
     Dosage: 1 IN 1CYCLICAL
     Route: 042
  72. ARANESP [Suspect]
     Active Substance: DARBEPOETIN ALFA
     Dosage: 10 MG, QOW
     Route: 042
  73. ARANESP [Suspect]
     Active Substance: DARBEPOETIN ALFA
     Route: 042
  74. ARANESP [Suspect]
     Active Substance: DARBEPOETIN ALFA
     Route: 042
  75. ARANESP [Suspect]
     Active Substance: DARBEPOETIN ALFA
     Route: 042
  76. SODIUM CITRATE [Suspect]
     Active Substance: SODIUM CITRATE
     Indication: Thrombosis
     Dosage: 2.5 MG, QD
     Route: 065
  77. SODIUM CITRATE [Suspect]
     Active Substance: SODIUM CITRATE
     Route: 065
  78. LUTEIN [Suspect]
     Active Substance: LUTEIN
     Indication: Nutritional supplementation
     Dosage: 12.5 GRAM, AS NECESSARY
     Route: 042
  79. ALBUTEROL SULFATE [Suspect]
     Active Substance: ALBUTEROL SULFATE
     Indication: Chronic obstructive pulmonary disease
     Route: 055
  80. DEXTROSE [Suspect]
     Active Substance: DEXTROSE
     Indication: Nutritional supplementation
     Dosage: 12.5 G, QD
     Route: 042
  81. ACETAMINOPHEN [Suspect]
     Active Substance: ACETAMINOPHEN
     Indication: Analgesic therapy
     Dosage: 650 MG, QD
     Route: 048
  82. PYRIDOXINE HYDROCHLORIDE [Suspect]
     Active Substance: PYRIDOXINE HYDROCHLORIDE
     Indication: Vitamin supplementation
     Route: 065
  83. PYRIDOXINE HYDROCHLORIDE [Suspect]
     Active Substance: PYRIDOXINE HYDROCHLORIDE
     Route: 065
  84. IPRATROPIUM BROMIDE [Suspect]
     Active Substance: IPRATROPIUM BROMIDE
     Indication: Dyspnoea
     Dosage: 1 DF, Q6H
     Route: 055
  85. IPRATROPIUM BROMIDE [Suspect]
     Active Substance: IPRATROPIUM BROMIDE
     Dosage: 1 UNK, QD
     Route: 055
  86. IPRATROPIUM BROMIDE [Suspect]
     Active Substance: IPRATROPIUM BROMIDE
     Route: 055
  87. IPRATROPIUM BROMIDE [Suspect]
     Active Substance: IPRATROPIUM BROMIDE
     Route: 055
  88. IPRATROPIUM BROMIDE [Suspect]
     Active Substance: IPRATROPIUM BROMIDE
     Route: 065
  89. VILANTEROL TRIFENATATE [Suspect]
     Active Substance: VILANTEROL TRIFENATATE
     Indication: Product used for unknown indication
     Route: 065
  90. INSULIN DEGLUDEC [Suspect]
     Active Substance: INSULIN DEGLUDEC
     Indication: Diabetes mellitus
     Dosage: UNK
     Route: 058
  91. WARFARIN SODIUM [Suspect]
     Active Substance: WARFARIN SODIUM
     Indication: Thrombosis
     Dosage: 2 G, QD
     Route: 048
  92. WARFARIN SODIUM [Suspect]
     Active Substance: WARFARIN SODIUM
     Dosage: 2 ML, QD
     Route: 048
  93. HERBALS\PAULLINIA CUPANA SEED [Suspect]
     Active Substance: HERBALS\PAULLINIA CUPANA SEED
     Indication: Nutritional supplementation
     Dosage: 12.5 MILLIGRAM
     Route: 065
  94. MANNITOL [Suspect]
     Active Substance: MANNITOL
     Indication: Nutritional supplementation
     Dosage: 12.5 GRAM
     Route: 042
  95. ASIAN GINSENG [Suspect]
     Active Substance: ASIAN GINSENG
     Indication: Nutritional supplementation
     Dosage: 12.5 MG
     Route: 065
  96. DULCOLAX (BISACODYL) [Suspect]
     Active Substance: BISACODYL
     Indication: Constipation
     Route: 054
  97. DULCOLAX (BISACODYL) [Suspect]
     Active Substance: BISACODYL
     Route: 054
  98. DULCOLAX (BISACODYL) [Suspect]
     Active Substance: BISACODYL
     Route: 054
  99. ASCORBIC ACID [Concomitant]
     Active Substance: ASCORBIC ACID
     Indication: Product used for unknown indication
  100. .BETA.-CAROTENE [Concomitant]
     Active Substance: .BETA.-CAROTENE
     Indication: Product used for unknown indication
  101. CHOLECALCIFEROL [Concomitant]
     Active Substance: CHOLECALCIFEROL
     Dosage: UNK
  102. DISODIUM HYDROGEN CITRATE [Concomitant]
     Active Substance: DISODIUM HYDROGEN CITRATE
     Indication: Thrombosis
     Dosage: 2.5 MILLILITER, AS NECESSARY
  103. BISACODYL [Concomitant]
     Active Substance: BISACODYL
     Indication: Off label use
     Dosage: 10 MILLIGRAM, AS NECESSARY
     Route: 054
  104. BISACODYL [Concomitant]
     Active Substance: BISACODYL
     Dosage: UNK
  105. POTASSIUM CHLORIDE [Concomitant]
     Active Substance: POTASSIUM CHLORIDE
     Indication: Product used for unknown indication
     Dosage: UNK
  106. MAGNESIUM OXIDE [Suspect]
     Active Substance: MAGNESIUM OXIDE
  107. MAGNESIUM TRISILICATE [Suspect]
     Active Substance: MAGNESIUM TRISILICATE
  108. SODIUM PHOSPHATE, MONOBASIC, ANHYDROUS [Suspect]
     Active Substance: SODIUM PHOSPHATE, MONOBASIC, ANHYDROUS

REACTIONS (17)
  - Multiple organ dysfunction syndrome [Fatal]
  - Appendicolith [Fatal]
  - Ventricular fibrillation [Fatal]
  - Vomiting [Fatal]
  - Stress [Fatal]
  - Appendicitis [Fatal]
  - Cardiogenic shock [Fatal]
  - Hyponatraemia [Fatal]
  - Off label use [Fatal]
  - Abdominal distension [Fatal]
  - General physical health deterioration [Fatal]
  - Nausea [Fatal]
  - Constipation [Fatal]
  - Ascites [Fatal]
  - Abdominal pain [Fatal]
  - Incorrect route of product administration [Unknown]
  - Sepsis [Fatal]
